FAERS Safety Report 4445825-1 (Version None)
Quarter: 2004Q3

REPORT INFORMATION
  Report Type: 
  Country: None (occurrence: None)
  Receive Date: 20040903
  Receipt Date: 20040831
  Transmission Date: 20050211
  Serious: Yes (Other)
  Sender: FDA-Public Use
  Company Number: 003#3#2004-00554

PATIENT
  Age: 78 Year
  Sex: Female

DRUGS (4)
  1. ISOSORBIDE DINITRATE [Suspect]
     Indication: PAIN
     Dosage: 1.30 MG BD, ORAL  SEE IMAGE
     Route: 048
     Dates: start: 20020801, end: 20040801
  2. ATORVASTATIN (ATORVASTATIN) [Concomitant]
  3. FRUMIL (AMILORIDE HYDROCHLORIDE, FUROSEMIDE) [Concomitant]
  4. DILTIAZEM HYDROCHLORIDE [Concomitant]

REACTIONS (1)
  - ANAL ULCER [None]
